FAERS Safety Report 17139878 (Version 1)
Quarter: 2019Q4

REPORT INFORMATION
  Report Type: Spontaneous
  Country: IT (occurrence: IT)
  Receive Date: 20191211
  Receipt Date: 20191211
  Transmission Date: 20200122
  Serious: Yes (Hospitalization)
  Sender: FDA-Public Use
  Company Number: IT-ACCORD-164629

PATIENT
  Age: 48 Year
  Sex: Female

DRUGS (5)
  1. GEMBIN [Suspect]
     Active Substance: GEMCITABINE HYDROCHLORIDE
     Indication: PRODUCT USED FOR UNKNOWN INDICATION
     Dosage: 40 MG / ML
     Route: 042
     Dates: start: 20191025, end: 20191025
  2. EMEND [Concomitant]
     Active Substance: APREPITANT
     Dosage: 125 MG,  80 MG
     Route: 048
     Dates: start: 20191025, end: 20191025
  3. DECADRON [Concomitant]
     Active Substance: DEXAMETHASONE
     Dosage: STRENGTH  8 MG / 2 ML , 3 AMPOULES OF 2 ML
     Route: 042
     Dates: start: 20191025, end: 20191025
  4. ONDANSETRON ACCORD HEALTHCARE [Concomitant]
     Active Substance: ONDANSETRON
     Dosage: STRENGTH 2 MG / ML
     Route: 042
     Dates: start: 20191025, end: 20191025
  5. CARBOPLATIN AHCL [Suspect]
     Active Substance: CARBOPLATIN
     Indication: PRODUCT USED FOR UNKNOWN INDICATION
     Dosage: STRENGTH  10 MG / ML
     Route: 042
     Dates: start: 20191025, end: 20191025

REACTIONS (2)
  - Anaphylactic shock [Unknown]
  - Dyspnoea [Unknown]

NARRATIVE: CASE EVENT DATE: 20191025
